FAERS Safety Report 8021281-1 (Version None)
Quarter: 2012Q1

REPORT INFORMATION
  Report Type: 
  Country: None (occurrence: None)
  Receive Date: 20120104
  Receipt Date: 20111222
  Transmission Date: 20120608
  Serious: Yes (Hospitalization)
  Sender: FDA-Public Use
  Company Number: US-BAYER-2011-036217

PATIENT
  Age: 41 Year
  Sex: Female
  Weight: 79.365 kg

DRUGS (4)
  1. LORTAB [Concomitant]
  2. YAZ [Suspect]
     Indication: MENSTRUAL DISORDER
     Dosage: UNK
     Dates: start: 20070203, end: 20070508
  3. PREVACID [Concomitant]
  4. YAZ [Suspect]
     Indication: DYSFUNCTIONAL UTERINE BLEEDING

REACTIONS (8)
  - DEEP VEIN THROMBOSIS [None]
  - ARTHRALGIA [None]
  - EMOTIONAL DISTRESS [None]
  - GENERAL PHYSICAL HEALTH DETERIORATION [None]
  - OEDEMA PERIPHERAL [None]
  - PAIN IN EXTREMITY [None]
  - FEAR [None]
  - ANXIETY [None]
